FAERS Safety Report 23972476 (Version 2)
Quarter: 2024Q4

REPORT INFORMATION
  Report Type: Spontaneous
  Country: US (occurrence: US)
  Receive Date: 20240613
  Receipt Date: 20241008
  Transmission Date: 20250115
  Serious: No
  Sender: SANOFI AVENTIS
  Company Number: US-SA-SAC20240606001300

PATIENT
  Age: 23 Year
  Sex: Female
  Weight: 61.23 kg

DRUGS (2)
  1. DUPIXENT [Suspect]
     Active Substance: DUPILUMAB
     Indication: Dermatitis atopic
     Dosage: 300 MG, QOW
     Route: 058
     Dates: start: 20240516
  2. DUPIXENT [Suspect]
     Active Substance: DUPILUMAB
     Indication: Dry skin

REACTIONS (3)
  - Injection site urticaria [Not Recovered/Not Resolved]
  - Nasopharyngitis [Recovered/Resolved]
  - Product use in unapproved indication [Unknown]

NARRATIVE: CASE EVENT DATE: 20240516
